FAERS Safety Report 17059136 (Version 2)
Quarter: 2020Q2

REPORT INFORMATION
  Report Type: Spontaneous
  Country: US (occurrence: US)
  Receive Date: 20191121
  Receipt Date: 20200408
  Transmission Date: 20200713
  Serious: No
  Sender: FDA-Public Use
  Company Number: NVSC2019US040877

PATIENT
  Age: 38 Year
  Sex: Female

DRUGS (4)
  1. LAMICTAL [Suspect]
     Active Substance: LAMOTRIGINE
     Indication: DEPRESSION
     Dosage: 250 MG
     Route: 065
  2. RESTORIL [Suspect]
     Active Substance: TEMAZEPAM
     Indication: DEPRESSION
     Dosage: UNK
     Route: 065
     Dates: start: 201610
  3. RESTORIL [Suspect]
     Active Substance: TEMAZEPAM
     Dosage: 15 MG
     Route: 065
     Dates: start: 201310, end: 201607
  4. KLONOPIN [Suspect]
     Active Substance: CLONAZEPAM
     Indication: DEPRESSION
     Dosage: 1 MG
     Route: 065
     Dates: start: 201310, end: 201607

REACTIONS (1)
  - Maternal exposure during pregnancy [Unknown]
